FAERS Safety Report 23705994 (Version 1)
Quarter: 2024Q2

REPORT INFORMATION
  Report Type: Spontaneous
  Country: US (occurrence: US)
  Receive Date: 20240404
  Receipt Date: 20240404
  Transmission Date: 20240716
  Serious: No
  Sender: FDA-Public Use
  Company Number: US-009507513-2403USA003449

PATIENT
  Age: 65 Year
  Sex: Male

DRUGS (6)
  1. TEMODAR [Suspect]
     Active Substance: TEMOZOLOMIDE
     Indication: Pancreatic neuroendocrine tumour
     Dosage: UNK
     Route: 048
  2. CAPECITABINE [Concomitant]
     Active Substance: CAPECITABINE
     Indication: Pancreatic neuroendocrine tumour
  3. RIBOCICLIB [Concomitant]
     Active Substance: RIBOCICLIB
     Indication: Pancreatic neuroendocrine tumour
  4. LANREOTIDE [Concomitant]
     Active Substance: LANREOTIDE
     Indication: Pancreatic neuroendocrine tumour
  5. FLUOROURACIL\IRINOTECAN\LEUCOVORIN\OXALIPLATIN [Concomitant]
     Active Substance: FLUOROURACIL\IRINOTECAN\LEUCOVORIN\OXALIPLATIN
     Indication: Pancreatic neuroendocrine tumour
  6. ATEZOLIZUMAB;BEVACIZUMAB [Concomitant]
     Indication: Pancreatic neuroendocrine tumour

REACTIONS (1)
  - Product use in unapproved indication [Unknown]
